FAERS Safety Report 17594974 (Version 1)
Quarter: 2020Q1

REPORT INFORMATION
  Report Type: Spontaneous
  Country: DE (occurrence: DE)
  Receive Date: 20200328
  Receipt Date: 20200328
  Transmission Date: 20200409
  Serious: Yes (Hospitalization)
  Sender: FDA-Public Use
  Company Number: NVSC2020DE080920

PATIENT
  Age: 44 Year
  Sex: Female

DRUGS (3)
  1. METHOTREXATE. [Suspect]
     Active Substance: METHOTREXATE
     Indication: CHORIOCARCINOMA
     Dosage: 50 MG, QD (D1, 3, 5, 7, Q14)
     Route: 042
  2. METHOTREXATE. [Suspect]
     Active Substance: METHOTREXATE
     Dosage: 75 MG, QD
     Route: 042
  3. CALCIUM FOLINATE [Suspect]
     Active Substance: LEUCOVORIN CALCIUM
     Indication: CHORIOCARCINOMA
     Dosage: 15 MG, QD (DAYS 2, 4, 6, AND 8)
     Route: 065

REACTIONS (4)
  - Product use in unapproved indication [Unknown]
  - Choriocarcinoma [Unknown]
  - Malignant neoplasm progression [Unknown]
  - Pelvic pain [Unknown]
